FAERS Safety Report 10653059 (Version 3)
Quarter: 2017Q4

REPORT INFORMATION
  Report Type: Report from Study
  Country: US (occurrence: US)
  Receive Date: 20141215
  Receipt Date: 20171127
  Transmission Date: 20180320
  Serious: Yes (Death, Hospitalization)
  Sender: FDA-Public Use
  Company Number: PHHO2014US016414

PATIENT
  Age: 78 Year
  Sex: Male
  Weight: 176 kg

DRUGS (1)
  1. PLACEBO [Suspect]
     Active Substance: UNSPECIFIED INGREDIENT
     Indication: CARDIOVASCULAR EVENT PROPHYLAXIS
     Route: 058
     Dates: start: 20110609, end: 20110627

REACTIONS (1)
  - Metastatic gastric cancer [Fatal]

NARRATIVE: CASE EVENT DATE: 20141001
